FAERS Safety Report 6369292-6 (Version None)
Quarter: 2009Q3

REPORT INFORMATION
  Report Type: 
  Country: None (occurrence: None)
  Receive Date: 20090916
  Receipt Date: 20090904
  Transmission Date: 20100115
  Serious: Yes (Other)
  Sender: FDA-Public Use
  Company Number: 2009AP003599

PATIENT
  Age: 9 Year
  Sex: Female

DRUGS (9)
  1. FLUOXETINE HCL [Suspect]
     Dosage: 5 MG; UNKNOWN; QD
  2. ISONIAZID [Suspect]
  3. RITONAVIR [Suspect]
  4. STADUVINE (STADUVINE) [Concomitant]
  5. LAMIVUDINE [Concomitant]
  6. LOPINAVIR (LOPINAVIR) [Concomitant]
  7. RIFAMPICIN [Concomitant]
  8. PYRAZINAMIDE [Concomitant]
  9. ETHIONAMIDE (ETHIONAMIDE) [Concomitant]

REACTIONS (23)
  - AGITATION [None]
  - ANTIDEPRESSANT DRUG LEVEL INCREASED [None]
  - BLUNTED AFFECT [None]
  - CATATONIA [None]
  - CONSCIOUSNESS FLUCTUATING [None]
  - DELIRIUM [None]
  - DISINHIBITION [None]
  - DISORIENTATION [None]
  - DISTURBANCE IN ATTENTION [None]
  - DRUG INTERACTION [None]
  - EUPHORIC MOOD [None]
  - FEAR [None]
  - HALLUCINATION, VISUAL [None]
  - HYPERVIGILANCE [None]
  - IMMUNE RECONSTITUTION SYNDROME [None]
  - MOOD ALTERED [None]
  - PERSECUTORY DELUSION [None]
  - POVERTY OF SPEECH [None]
  - PYREXIA [None]
  - SEROTONIN SYNDROME [None]
  - SOMNOLENCE [None]
  - TEARFULNESS [None]
  - THINKING ABNORMAL [None]
